FAERS Safety Report 5102671-3 (Version None)
Quarter: 2006Q3

REPORT INFORMATION
  Report Type: 
  Country: None (occurrence: None)
  Receive Date: 20060907
  Receipt Date: 20060828
  Transmission Date: 20061208
  Serious: Yes (Death, Life-Threatening)
  Sender: FDA-Public Use
  Company Number: 2006090583

PATIENT
  Age: 71 Year
  Sex: Male

DRUGS (3)
  1. ZYVOX [Suspect]
     Indication: STAPHYLOCOCCAL INFECTION
     Dosage: 1200 MG, INTRAVENOUS
     Route: 042
     Dates: start: 20060704, end: 20060713
  2. RINGERS INJECTION IN PLASTIC CONTAINER [Concomitant]
  3. ALL OTHER THERAPEUTIC PRODUCTS (ALL OTHER THERAPEUTIC PRODUCTS) [Concomitant]

REACTIONS (1)
  - MYOCARDIAL INFARCTION [None]
